FAERS Safety Report 5577357-1 (Version None)
Quarter: 2007Q4

REPORT INFORMATION
  Report Type: 
  Country: None (occurrence: None)
  Receive Date: 20071228
  Receipt Date: 20071218
  Transmission Date: 20080405
  Serious: Yes (Other)
  Sender: FDA-Public Use
  Company Number: AU-PFIZER INC-2007106614

PATIENT
  Age: 85 Year
  Sex: Female

DRUGS (2)
  1. NEURONTIN [Suspect]
     Indication: PAIN
  2. MORPHINE [Suspect]

REACTIONS (4)
  - ABNORMAL BEHAVIOUR [None]
  - COMMUNICATION DISORDER [None]
  - HALLUCINATION [None]
  - THINKING ABNORMAL [None]
